FAERS Safety Report 23160250 (Version 1)
Quarter: 2023Q4

REPORT INFORMATION
  Report Type: Spontaneous
  Country: BR (occurrence: BR)
  Receive Date: 20231108
  Receipt Date: 20231108
  Transmission Date: 20240110
  Serious: Yes (Hospitalization, Other)
  Sender: FDA-Public Use
  Company Number: BR-BoehringerIngelheim-2023-BI-271257

PATIENT
  Age: 73 Year
  Sex: Male
  Weight: 63 kg

DRUGS (9)
  1. CLONIDINE [Suspect]
     Active Substance: CLONIDINE
     Indication: Cardiac disorder
     Dosage: 3 DF 1/1 DAY(S) (SINCE APPROXIMATELY 2015, 3 ?TABLETS A DAY, FOR CARDIAC DISORDER.)
     Dates: start: 2015
  2. HYDRALAZINE HYDROCHLORIDE [Concomitant]
     Active Substance: HYDRALAZINE HYDROCHLORIDE
     Indication: Cardiac disorder
     Dosage: 2 DF 1 IN 1, 2 TABLETS A DAY
     Route: 048
  3. VASTAREL [Concomitant]
     Active Substance: TRIMETAZIDINE DIHYDROCHLORIDE
     Indication: Cardiac disorder
     Dosage: 2 DF 1 IN 1 DAY
     Route: 048
  4. CLOPIDOGREL [Concomitant]
     Active Substance: CLOPIDOGREL BISULFATE
     Indication: Cardiac disorder
     Dosage: 1 DF
     Route: 048
  5. METOPROLOL SUCCINATE [Concomitant]
     Active Substance: METOPROLOL SUCCINATE
     Indication: Cardiac disorder
     Dosage: 3 DF 1 IN 1
     Route: 048
     Dates: start: 2021
  6. PROPATYL NITRATE [Concomitant]
     Active Substance: PROPATYL NITRATE
     Indication: Cardiac disorder
     Dosage: 3 DF 1 IN 1
     Route: 048
  7. ROSUVASTATIN [Concomitant]
     Active Substance: ROSUVASTATIN
     Indication: Blood cholesterol abnormal
     Dosage: 1 DF
     Route: 048
     Dates: start: 2020
  8. ASPIRIN [Concomitant]
     Active Substance: ASPIRIN
     Indication: Anticoagulant therapy
     Dosage: 1 DF
     Route: 048
     Dates: start: 202308
  9. AMLODIPINE [Concomitant]
     Active Substance: AMLODIPINE BESYLATE
     Indication: Cardiac disorder
     Dosage: 2 DF 1 IN 1 DAY
     Route: 048

REACTIONS (6)
  - Infarction [Recovered/Resolved]
  - Heart rate irregular [Not Recovered/Not Resolved]
  - Blood pressure fluctuation [Not Recovered/Not Resolved]
  - Aneurysm [Recovered/Resolved]
  - Intentional product use issue [Not Recovered/Not Resolved]
  - Product use in unapproved indication [Not Recovered/Not Resolved]

NARRATIVE: CASE EVENT DATE: 20230806
